FAERS Safety Report 17085793 (Version 1)
Quarter: 2019Q4

REPORT INFORMATION
  Report Type: Spontaneous
  Country: US (occurrence: US)
  Receive Date: 20191128
  Receipt Date: 20191128
  Transmission Date: 20200122
  Serious: No
  Sender: FDA-Public Use
  Company Number: US-BRISTOL-MYERS SQUIBB COMPANY-BMS-2019-114540

PATIENT
  Age: 33 Year
  Sex: Female

DRUGS (2)
  1. NIVOLUMAB [Suspect]
     Active Substance: NIVOLUMAB
     Indication: FIBROSARCOMA
     Route: 065
  2. IPILIMUMAB [Suspect]
     Active Substance: IPILIMUMAB
     Indication: FIBROSARCOMA
     Route: 065

REACTIONS (3)
  - Chronic gastritis [Recovering/Resolving]
  - Intentional product use issue [Unknown]
  - Duodenitis [Unknown]
